FAERS Safety Report 24372567 (Version 4)
Quarter: 2024Q4

REPORT INFORMATION
  Report Type: Report from Study
  Country: CA (occurrence: CA)
  Receive Date: 20240927
  Receipt Date: 20241209
  Transmission Date: 20250115
  Serious: Yes (Hospitalization, Other)
  Sender: CSL BEHRING
  Company Number: CA-BEH-2024175192

PATIENT
  Age: 84 Year
  Sex: Male
  Weight: 93.9 kg

DRUGS (9)
  1. HIZENTRA [Suspect]
     Active Substance: HUMAN IMMUNOGLOBULIN G
     Indication: Secondary immunodeficiency
     Dosage: 29 G, WEEKLY DIVIDED INTO TWO DAYS OF THE WEEK
     Route: 065
     Dates: start: 20220930
  2. HIZENTRA [Suspect]
     Active Substance: HUMAN IMMUNOGLOBULIN G
     Indication: Myasthenia gravis
     Dosage: UNK
     Route: 065
  3. HIZENTRA [Suspect]
     Active Substance: HUMAN IMMUNOGLOBULIN G
     Dosage: UNK
     Route: 065
  4. HIZENTRA [Suspect]
     Active Substance: HUMAN IMMUNOGLOBULIN G
     Dosage: UNK
     Route: 065
  5. HIZENTRA [Suspect]
     Active Substance: HUMAN IMMUNOGLOBULIN G
     Dosage: UNK
     Route: 065
  6. HIZENTRA [Suspect]
     Active Substance: HUMAN IMMUNOGLOBULIN G
     Dosage: UNK
     Route: 065
  7. HIZENTRA [Suspect]
     Active Substance: HUMAN IMMUNOGLOBULIN G
     Dosage: 29 G, WEEKLY DIVIDED INTO TWO DAYS OF THE WEEK
     Route: 065
     Dates: start: 20220930
  8. HIZENTRA [Suspect]
     Active Substance: HUMAN IMMUNOGLOBULIN G
     Dosage: 29 G, WEEKLY DIVIDED INTO TWO DAYS OF THE WEEK
     Route: 065
     Dates: start: 20220930
  9. HIZENTRA [Suspect]
     Active Substance: HUMAN IMMUNOGLOBULIN G
     Dosage: 29 G, QW
     Route: 065
     Dates: start: 20220930

REACTIONS (49)
  - Pyrexia [Unknown]
  - Confusional state [Unknown]
  - Asthenia [Unknown]
  - Therapy interrupted [Unknown]
  - Diarrhoea [Unknown]
  - Insomnia [Unknown]
  - Abdominal pain [Unknown]
  - Anxiety [Unknown]
  - Feeling jittery [Unknown]
  - Asthenia [Unknown]
  - Hypotension [Unknown]
  - Pallor [Unknown]
  - Nausea [Unknown]
  - Abdominal symptom [Unknown]
  - Bowel movement irregularity [Unknown]
  - Gastrointestinal sounds abnormal [Unknown]
  - Vomiting [Unknown]
  - Pallor [Unknown]
  - Confusional state [Unknown]
  - Nervousness [Unknown]
  - Asthenia [Unknown]
  - Lethargy [Unknown]
  - Disorganised speech [Unknown]
  - Vomiting [Unknown]
  - Vomiting [Not Recovered/Not Resolved]
  - Pallor [Not Recovered/Not Resolved]
  - Asthenia [Not Recovered/Not Resolved]
  - Haemoglobin decreased [Unknown]
  - Pallor [Not Recovered/Not Resolved]
  - Asthenia [Unknown]
  - Fatigue [Not Recovered/Not Resolved]
  - Haematoma [Not Recovered/Not Resolved]
  - Off label use [Unknown]
  - Flatulence [Unknown]
  - Arthralgia [Unknown]
  - Contusion [Not Recovered/Not Resolved]
  - Vomiting [Unknown]
  - Thirst [Unknown]
  - Asthenia [Unknown]
  - Pallor [Unknown]
  - General physical health deterioration [Unknown]
  - Pallor [Unknown]
  - Lethargy [Unknown]
  - Illness [Unknown]
  - Fall [Unknown]
  - Mobility decreased [Unknown]
  - Anxiety [Unknown]
  - Confusional state [Unknown]
  - Therapy interrupted [Unknown]

NARRATIVE: CASE EVENT DATE: 20240630
